FAERS Safety Report 24539407 (Version 1)
Quarter: 2024Q4

REPORT INFORMATION
  Report Type: Spontaneous
  Country: US (occurrence: None)
  Receive Date: 20241022
  Receipt Date: 20241022
  Transmission Date: 20250114
  Serious: No
  Sender: Public
  Company Number: None

PATIENT
  Age: 43 Year
  Sex: Male
  Weight: 102 kg

DRUGS (1)
  1. DUPILUMAB [Suspect]
     Active Substance: DUPILUMAB
     Indication: Dermatitis atopic
     Dates: start: 20240227, end: 20240403

REACTIONS (6)
  - Migraine [None]
  - Paraesthesia [None]
  - Sinusitis [None]
  - Upper respiratory tract infection [None]
  - Nasal congestion [None]
  - Paraesthesia [None]

NARRATIVE: CASE EVENT DATE: 20240331
